FAERS Safety Report 9953238 (Version 5)
Quarter: 2014Q2

REPORT INFORMATION
  Report Type: Spontaneous
  Country: GB (occurrence: GB)
  Receive Date: 20140304
  Receipt Date: 20140418
  Transmission Date: 20141212
  Serious: Yes (Death)
  Sender: FDA-Public Use
  Company Number: GB-009507513-0510GBR00154

PATIENT
  Age: 63 Year
  Sex: Male

DRUGS (13)
  1. FOSAMAX 70MG [Suspect]
     Dosage: 70 MG, QW
     Route: 048
  2. ACETAMINOPHEN [Suspect]
     Dosage: 500 MG, UNK
     Route: 048
  3. SINGULAIR [Suspect]
     Dosage: 10 MG, UNK
     Route: 048
  4. SPIRIVA [Suspect]
     Indication: CHRONIC OBSTRUCTIVE PULMONARY DISEASE
     Dosage: 18 MICROGRAM, UNK
  5. BUMETANIDE [Suspect]
     Dosage: 1 MG, UNK
  6. HUMALOG [Suspect]
     Dosage: 100 IU, UNK
  7. HUMULIN [Suspect]
     Dosage: 100 IU, UNK
  8. LISINOPRIL [Suspect]
     Dosage: 10 MG, UNK
     Route: 048
  9. NYSTATIN [Suspect]
     Dosage: 100000 IU, UNK
  10. ALBUTEROL SULFATE [Suspect]
     Dosage: 100 MICROGRAM, UNK
     Route: 055
  11. SERETIDE [Suspect]
     Dosage: 500 IU, UNK
  12. TRAMADOL HYDROCHLORIDE [Suspect]
     Dosage: 50 MG, QD
     Route: 048
  13. INSULIN [Suspect]
     Route: 065

REACTIONS (1)
  - Lobar pneumonia [Fatal]
